FAERS Safety Report 17090954 (Version 1)
Quarter: 2019Q4

REPORT INFORMATION
  Report Type: Spontaneous
  Country: US (occurrence: US)
  Receive Date: 20191129
  Receipt Date: 20191129
  Transmission Date: 20200122
  Serious: Yes (Hospitalization)
  Sender: FDA-Public Use
  Company Number: US-ROCHE-2480593

PATIENT
  Sex: Female

DRUGS (1)
  1. ESBRIET [Suspect]
     Active Substance: PIRFENIDONE
     Indication: IDIOPATHIC PULMONARY FIBROSIS
     Dosage: TID 267MG
     Route: 048
     Dates: start: 201811

REACTIONS (3)
  - Gastrointestinal inflammation [Unknown]
  - Haemorrhage [Unknown]
  - Diarrhoea [Unknown]
